FAERS Safety Report 20187338 (Version 1)
Quarter: 2021Q4

REPORT INFORMATION
  Report Type: Spontaneous
  Country: US (occurrence: None)
  Receive Date: 20211214
  Receipt Date: 20211214
  Transmission Date: 20220303
  Serious: Yes (Other)
  Sender: FDA-Public Use
  Company Number: None

PATIENT
  Age: 75 Year
  Sex: Male

DRUGS (7)
  1. INGREZZA [Suspect]
     Active Substance: VALBENAZINE
     Indication: Tardive dyskinesia
     Dosage: OTHER STRENGTH : 40-80MG;?OTHER QUANTITY : 40MGX1WK,80MGX3WK;?FREQUENCY : DAILY;?
     Route: 048
     Dates: start: 20211118
  2. ROSUVASTATIN [Concomitant]
     Active Substance: ROSUVASTATIN
  3. METFORMIN [Concomitant]
     Active Substance: METFORMIN HYDROCHLORIDE
  4. MYBETRIQ 50MG [Concomitant]
  5. PREGABALIN [Concomitant]
     Active Substance: PREGABALIN
  6. ASPIRIN [Concomitant]
     Active Substance: ASPIRIN
  7. NIACINAMIDE 500MG [Concomitant]

REACTIONS (2)
  - Depression [None]
  - Therapy cessation [None]

NARRATIVE: CASE EVENT DATE: 20211118
